FAERS Safety Report 10044935 (Version 2)
Quarter: 2021Q2

REPORT INFORMATION
  Report Type: Spontaneous
  Country: KR (occurrence: KR)
  Receive Date: 20140328
  Receipt Date: 20210604
  Transmission Date: 20210716
  Serious: Yes (Other)
  Sender: FDA-Public Use
  Company Number: KR-GLAXOSMITHKLINE-B0980753A

PATIENT
  Age: 54 Year
  Sex: Male
  Weight: 77 kg

DRUGS (2)
  1. LAMIVUDINE HBV [Suspect]
     Active Substance: LAMIVUDINE
     Indication: HEPATITIS B
     Dosage: UNK
     Route: 065
  2. HEPSERA [Suspect]
     Active Substance: ADEFOVIR DIPIVOXIL
     Indication: HEPATITIS B
     Dosage: 10 MG
     Route: 065

REACTIONS (22)
  - Osteomalacia [Recovering/Resolving]
  - Arthralgia [Recovering/Resolving]
  - Hypouricaemia [Unknown]
  - Vitamin D decreased [Recovering/Resolving]
  - Microalbuminuria [Recovering/Resolving]
  - Musculoskeletal pain [Recovering/Resolving]
  - Azotaemia [Recovering/Resolving]
  - Cough [Recovering/Resolving]
  - Glomerular filtration rate decreased [Unknown]
  - Sneezing [Recovering/Resolving]
  - Back pain [Recovering/Resolving]
  - Drug resistance [Unknown]
  - Bone density decreased [Unknown]
  - Chest pain [Recovering/Resolving]
  - Short stature [Unknown]
  - Blood alkaline phosphatase increased [Unknown]
  - Bone disorder [Recovering/Resolving]
  - Growth retardation [Recovering/Resolving]
  - Renal tubular disorder [Recovering/Resolving]
  - Hypophosphataemia [Recovering/Resolving]
  - Spinal pain [Unknown]
  - Fracture [Recovering/Resolving]
